FAERS Safety Report 4294418-8 (Version None)
Quarter: 2004Q1

REPORT INFORMATION
  Report Type: 
  Country: None (occurrence: None)
  Receive Date: 20040211
  Receipt Date: 20040128
  Transmission Date: 20041129
  Serious: Yes (Death, Other)
  Sender: FDA-Public Use
  Company Number: US_0401100272

PATIENT
  Age: 19 Year
  Sex: Female

DRUGS (1)
  1. PROZAC [Suspect]
     Dosage: 40 MG
     Dates: start: 20020109, end: 20020114

REACTIONS (2)
  - COMPLETED SUICIDE [None]
  - PHARMACEUTICAL PRODUCT COMPLAINT [None]
